FAERS Safety Report 6469249-0 (Version None)
Quarter: 2009Q4

REPORT INFORMATION
  Report Type: 
  Country: None (occurrence: None)
  Receive Date: 20091203
  Receipt Date: 20080129
  Transmission Date: 20100525
  Serious: Yes (Hospitalization)
  Sender: FDA-Public Use
  Company Number: JP-ELI_LILLY_AND_COMPANY-JP200707004831

PATIENT
  Sex: Female
  Weight: 60.1 kg

DRUGS (18)
  1. PEMETREXED [Suspect]
     Indication: PLEURAL MESOTHELIOMA MALIGNANT
     Dosage: 500 MG/M2, OTHER
     Route: 042
     Dates: start: 20070618
  2. CISPLATIN [Suspect]
     Indication: PLEURAL MESOTHELIOMA MALIGNANT
     Dosage: 75 MG/M2, OTHER
     Route: 042
     Dates: start: 20070618
  3. PANVITAN [Concomitant]
     Indication: PROPHYLAXIS
     Route: 048
     Dates: start: 20070611, end: 20070713
  4. HYDROXOCOBALAMIN ACETATE [Concomitant]
     Indication: PROPHYLAXIS
     Dosage: 1 MG, UNK
     Route: 030
     Dates: start: 20070611
  5. GASTER [Concomitant]
     Indication: PROPHYLAXIS
     Dosage: 20 MG, DAILY (1/D)
     Route: 042
     Dates: start: 20070620, end: 20070623
  6. OMEPRAL [Concomitant]
     Indication: PROPHYLAXIS
     Dosage: 40 MG, UNKNOWN
     Route: 042
     Dates: start: 20070623, end: 20070629
  7. URSO 250 [Concomitant]
     Indication: CHOLELITHIASIS
     Dosage: 300 MG, UNK
     Route: 048
     Dates: end: 20070713
  8. NORVASC [Concomitant]
     Indication: HYPERTENSION
     Dosage: 2.5 MG, UNK
     Route: 048
     Dates: end: 20070713
  9. LIPITOR [Concomitant]
     Indication: HYPERLIPIDAEMIA
     Dosage: 10 MG, UNK
     Route: 048
     Dates: end: 20070713
  10. MILMAG [Concomitant]
     Indication: CONSTIPATION
     Dosage: 1050 MG, UNK
     Route: 048
     Dates: end: 20070713
  11. KYTRIL [Concomitant]
     Indication: PROPHYLAXIS
     Dosage: 3 MG, UNK
     Route: 042
     Dates: start: 20070618, end: 20070620
  12. KYTRIL /01178102/ [Concomitant]
     Indication: PROPHYLAXIS
     Dosage: 2 MG, UNK
     Route: 048
     Dates: start: 20070621, end: 20070624
  13. ALLOID G [Concomitant]
     Indication: PROPHYLAXIS
     Dosage: 60 ML, UNK
     Route: 048
     Dates: start: 20070626, end: 20070629
  14. BIOFERMIN R [Concomitant]
     Indication: PROPHYLAXIS
     Dosage: 3 G, UNK
     Route: 048
     Dates: start: 20070629, end: 20070702
  15. FELTASE [Concomitant]
     Indication: PROPHYLAXIS
     Dosage: 3 D/F, UNK
     Route: 048
     Dates: start: 20070706, end: 20070710
  16. SUCRALFATE [Concomitant]
     Indication: PROPHYLAXIS
     Dosage: 30 ML, UNK
     Route: 048
     Dates: start: 20070707, end: 20070713
  17. MANNIGEN [Concomitant]
     Indication: PROPHYLAXIS
     Dosage: 200 ML, UNK
     Route: 042
     Dates: start: 20070618, end: 20070618
  18. LASIX [Concomitant]
     Indication: PROPHYLAXIS
     Dosage: 20 MG, UNK
     Route: 042
     Dates: start: 20070616, end: 20070618

REACTIONS (3)
  - CHOLECYSTITIS [None]
  - DIARRHOEA [None]
  - PSEUDOMONAL SEPSIS [None]
